FAERS Safety Report 8848717 (Version 1)
Quarter: 2012Q4

REPORT INFORMATION
  Report Type: Spontaneous
  Country: US (occurrence: None)
  Receive Date: 20121017
  Receipt Date: 20121017
  Transmission Date: 20130627
  Serious: Yes (Life-Threatening)
  Sender: FDA-Public Use
  Company Number: None

PATIENT
  Age: 63 Year
  Sex: Male
  Weight: 73.6 kg

DRUGS (1)
  1. LANTHANUM [Suspect]
     Indication: BLOOD PHOSPHORUS INCREASED
     Route: 048
     Dates: start: 20120910, end: 20120918

REACTIONS (2)
  - Angioedema [None]
  - No reaction on previous exposure to drug [None]
